FAERS Safety Report 4636531-9 (Version None)
Quarter: 2005Q2

REPORT INFORMATION
  Report Type: 
  Country: None (occurrence: None)
  Receive Date: 20050415
  Receipt Date: 20050218
  Transmission Date: 20051028
  Serious: Yes (Hospitalization)
  Sender: FDA-Public Use
  Company Number: NL-GLAXOSMITHKLINE-B0372750A

PATIENT
  Age: 26 Year
  Sex: Female
  Weight: 60 kg

DRUGS (4)
  1. ATOVAQUONE + PROGUANIL HYDROCHLORIDE [Suspect]
     Indication: MALARIA PROPHYLAXIS
     Route: 065
     Dates: start: 20050120, end: 20050224
  2. TERBINAFINE HCL [Suspect]
     Dosage: 250MG PER DAY
     Route: 065
     Dates: start: 20041207, end: 20050201
  3. CYCLIZINE [Concomitant]
     Dosage: 50MG PER DAY
     Route: 065
     Dates: start: 20050201
  4. LEVONORGESTREL AND ETHINYL ESTRADIOL [Concomitant]
     Dosage: 1TAB PER DAY
     Route: 065
     Dates: start: 19961201

REACTIONS (6)
  - DRUG INEFFECTIVE [None]
  - DRUG INTERACTION [None]
  - MALARIA [None]
  - MEMORY IMPAIRMENT [None]
  - PLASMODIUM FALCIPARUM INFECTION [None]
  - WEIGHT DECREASED [None]
